FAERS Safety Report 4852934-1 (Version None)
Quarter: 2005Q4

REPORT INFORMATION
  Report Type: 
  Country: None (occurrence: None)
  Receive Date: 20051212
  Receipt Date: 20050315
  Transmission Date: 20060501
  Serious: Yes (Hospitalization)
  Sender: FDA-Public Use
  Company Number: 2005BH002917

PATIENT
  Age: 21 Year
  Sex: Female
  Weight: 63.5 kg

DRUGS (19)
  1. TRANSDERM SCOP [Suspect]
     Indication: POST PROCEDURAL NAUSEA
     Dosage: ONCE;TDER
     Route: 062
     Dates: start: 20050314, end: 20050314
  2. ZOFRAN [Concomitant]
  3. DESFLURANE [Concomitant]
  4. NITROUS OXIDE W/ OXYGEN [Concomitant]
  5. LIDOCAINE [Concomitant]
  6. PROPOFOL [Concomitant]
  7. FENTANYL [Concomitant]
  8. ROCURONIUM [Concomitant]
  9. NEOSTIGMINE [Concomitant]
  10. ROBINUL [Concomitant]
  11. TORADOL [Concomitant]
  12. MORPHINE [Concomitant]
  13. PERCOCET [Concomitant]
  14. IBUPROFEN [Concomitant]
  15. CEFOTETAN [Concomitant]
  16. REGLAN [Concomitant]
  17. COLACE [Concomitant]
  18. TYLENOL [Concomitant]
  19. ADVIL [Concomitant]

REACTIONS (2)
  - BLOOD PRESSURE DECREASED [None]
  - INTRA-ABDOMINAL HAEMORRHAGE [None]
